FAERS Safety Report 8315498 (Version 2)
Quarter: 2012Q4

REPORT INFORMATION
  Report Type: 
  Country: US (occurrence: US)
  Receive Date: 20111229
  Receipt Date: 20120912
  Transmission Date: 20130627
  Serious: Yes (Hospitalization)
  Sender: FDA-Public Use
  Company Number: US-ELI_LILLY_AND_COMPANY-US201109005037

PATIENT
  Age: 76 Year
  Sex: Female
  Weight: 61.68 kg

DRUGS (13)
  1. FORTEO [Suspect]
     Indication: OSTEOPOROSIS
     Dosage: 20 ug, qd
     Route: 058
     Dates: start: 201107
  2. FORTEO [Suspect]
     Dosage: 20 ug, qd
     Route: 065
  3. FORTEO [Suspect]
     Dosage: 20 ug, qd
     Route: 065
  4. FORTEO [Suspect]
     Dosage: 20 ug, qd
     Route: 065
  5. FLEXERIL [Concomitant]
  6. DIOVAN [Concomitant]
     Dosage: UNK
  7. LIPITOR [Concomitant]
     Dosage: UNK
  8. XANAX [Concomitant]
     Dosage: UNK
  9. DETROL [Concomitant]
     Dosage: UNK
  10. TRAZODONE [Concomitant]
     Dosage: UNK
  11. CLARINEX [Concomitant]
     Dosage: UNK
  12. NUCYNTA [Concomitant]
     Dosage: UNK
  13. NAPRELAN [Concomitant]
     Dosage: UNK

REACTIONS (8)
  - Hernia hiatus repair [Recovered/Resolved]
  - Coeliac disease [Unknown]
  - Dry mouth [Unknown]
  - Laboratory test abnormal [Unknown]
  - Haemorrhage [Unknown]
  - Injury associated with device [Unknown]
  - Diarrhoea [Unknown]
  - Muscle spasms [Unknown]
